FAERS Safety Report 20636752 (Version 1)
Quarter: 2022Q1

REPORT INFORMATION
  Report Type: Spontaneous
  Country: SE (occurrence: SE)
  Receive Date: 20220325
  Receipt Date: 20220325
  Transmission Date: 20220423
  Serious: Yes (Hospitalization)
  Sender: FDA-Public Use
  Company Number: None

PATIENT
  Age: 90 Year
  Sex: Female

DRUGS (4)
  1. GABAPENTIN [Suspect]
     Active Substance: GABAPENTIN
     Dosage: 600 MILLIGRAM DAILY; 600 MG/DAY
  2. PREGABALIN [Suspect]
     Active Substance: PREGABALIN
     Route: 065
  3. BISOPROLOL [Suspect]
     Active Substance: BISOPROLOL
     Route: 065
  4. XARELTO [Concomitant]
     Active Substance: RIVAROXABAN

REACTIONS (3)
  - Depressed level of consciousness [Recovered/Resolved]
  - Bradycardia [Recovered/Resolved]
  - Hypotension [Recovered/Resolved]

NARRATIVE: CASE EVENT DATE: 20211118
